FAERS Safety Report 9269870 (Version 3)
Quarter: 2014Q1

REPORT INFORMATION
  Report Type: Spontaneous
  Country: US (occurrence: US)
  Receive Date: 20130503
  Receipt Date: 20140310
  Transmission Date: 20141002
  Serious: Yes (Other)
  Sender: FDA-Public Use
  Company Number: US-PFIZER INC-2013112145

PATIENT
  Age: 60 Year
  Sex: Female

DRUGS (26)
  1. LYRICA [Suspect]
     Indication: FIBROMYALGIA
     Dosage: 100 MG, 2X/DAY
     Route: 048
  2. LYRICA [Suspect]
     Indication: PAIN
     Dosage: 75 MG, 2X/DAY
     Route: 048
  3. LYRICA [Suspect]
     Dosage: 100 MG, 3X/DAY (1 PO TID)
     Route: 048
  4. VENLAFAXINE ER [Concomitant]
     Indication: DEPRESSION
     Dosage: 150 MG, 2X/DAY (EVERY MORNING AND AT BEDTIME)
  5. VENLAFAXINE ER [Concomitant]
     Dosage: 150 MG, 3X/DAY
  6. ABILIFY [Concomitant]
     Indication: DEPRESSION
     Dosage: 2.5 MG, 1X/DAY (EVERY NIGHT AT BEDTIME)
  7. OMEPRAZOLE [Concomitant]
     Indication: GASTROOESOPHAGEAL REFLUX DISEASE
     Dosage: 20 MG, 1X/DAY (EVERY DAY)
  8. SIMVASTATIN [Concomitant]
     Indication: BLOOD CHOLESTEROL INCREASED
     Dosage: 40 MG, 1X/DAY (EVERY DAY)
  9. BUMEX [Concomitant]
     Indication: CARDIAC FAILURE CHRONIC
     Dosage: 1 MG, EVERY DAY AS NEEDED
  10. TRAZODONE [Concomitant]
     Indication: INSOMNIA
     Dosage: 50 MG, 1X/DAY (EVERY NIGHT AT BEDTIME)
  11. METHADONE [Concomitant]
     Indication: PAIN
     Dosage: 20 MG (10 MG 2 PILLS), 3X/DAY (EVERY 8 HOURS)
  12. OXYCODONE HCL [Concomitant]
     Indication: PAIN
     Dosage: 15 MG, 3X/DAY
  13. NAPROXIN [Concomitant]
     Indication: PAIN
     Dosage: 500 MG, 2X/DAY
  14. METHOCARBAMOL [Concomitant]
     Indication: FIBROMYALGIA
     Dosage: 500 MG, TWICE A DAY AS NEEDED
  15. METHOCARBAMOL [Concomitant]
     Indication: PAIN
  16. BIPAP [Concomitant]
     Indication: SLEEP APNOEA SYNDROME
     Dosage: 8CM H20 WEAR WHILE SLEEPING
  17. O2 [Concomitant]
     Indication: SLEEP APNOEA SYNDROME
     Dosage: 2 LMP WEAR WHILE SLEEPING
  18. VENTOLIN [Concomitant]
     Indication: CHRONIC OBSTRUCTIVE PULMONARY DISEASE
     Dosage: 90 UG, AS NEEDED
  19. ALBUTEROL SULFATE [Concomitant]
     Indication: CHRONIC OBSTRUCTIVE PULMONARY DISEASE
     Dosage: 2.5 MG/ 3ML HAND HELD NEB AS NEEDED
  20. BUDESONIDE [Concomitant]
     Indication: CHRONIC OBSTRUCTIVE PULMONARY DISEASE
     Dosage: 0.5 MG HAND HELD NEB DAILY
  21. ROXICODONE [Concomitant]
     Dosage: UNK
  22. B12 [Concomitant]
     Dosage: UNK
  23. EFFEXOR XR [Concomitant]
     Dosage: UNK
  24. ROBAXIN [Concomitant]
     Dosage: UNK
  25. VIT D [Concomitant]
     Dosage: UNK
  26. PRILOSEC [Concomitant]
     Dosage: UNK

REACTIONS (2)
  - Pneumonia [Unknown]
  - Confusional state [Unknown]
